FAERS Safety Report 12415973 (Version 1)
Quarter: 2016Q2

REPORT INFORMATION
  Report Type: Report from Study
  Country: CN (occurrence: CN)
  Receive Date: 20160530
  Receipt Date: 20160530
  Transmission Date: 20160815
  Serious: Yes (Other)
  Sender: FDA-Public Use
  Company Number: CN-ACCORD-041025

PATIENT
  Age: 51 Year
  Sex: Female

DRUGS (2)
  1. CISPLATIN. [Suspect]
     Active Substance: CISPLATIN
     Indication: INTRAPERITONEAL HYPERTHERMIC CHEMOTHERAPY
  2. MITOMYCIN. [Suspect]
     Active Substance: MITOMYCIN
     Indication: INTRAPERITONEAL HYPERTHERMIC CHEMOTHERAPY

REACTIONS (2)
  - Proteus infection [Unknown]
  - Small intestinal perforation [Unknown]
